FAERS Safety Report 4727106-1 (Version None)
Quarter: 2005Q3

REPORT INFORMATION
  Report Type: 
  Country: None (occurrence: None)
  Receive Date: 20050726
  Receipt Date: 20050711
  Transmission Date: 20060218
  Serious: Yes (Other)
  Sender: FDA-Public Use
  Company Number: S05-USA-01603-01

PATIENT
  Age: 51 Year
  Sex: Female
  Weight: 49 kg

DRUGS (15)
  1. LEXAPRO [Suspect]
     Dosage: 5 MG QD PO
     Route: 048
     Dates: start: 20050324, end: 20050412
  2. WARFARIN SODIUM [Suspect]
     Dosage: 5 MG QD PO
     Route: 048
     Dates: start: 20050326, end: 20050329
  3. WARFARIN SODIUM [Suspect]
     Dosage: 2.5 MG QD PO
     Route: 048
     Dates: start: 20050330, end: 20050402
  4. TRAZODONE HCL [Concomitant]
  5. RESTORIL [Concomitant]
  6. QUINAPRIL [Concomitant]
  7. PREDNISONE [Concomitant]
  8. LOPRESSOR XL (METOPROLOL) [Concomitant]
  9. MEGESTROL [Concomitant]
  10. LOSARTAN [Concomitant]
  11. LORATADINE [Concomitant]
  12. INSULIN [Concomitant]
  13. PEPCID [Concomitant]
  14. EPOGEN [Concomitant]
  15. CLONIDINE [Concomitant]

REACTIONS (34)
  - ACTIVATED PARTIAL THROMBOPLASTIN TIME PROLONGED [None]
  - ALANINE AMINOTRANSFERASE DECREASED [None]
  - ANION GAP INCREASED [None]
  - ASPARTATE AMINOTRANSFERASE INCREASED [None]
  - BLOOD ALBUMIN DECREASED [None]
  - BLOOD ALKALINE PHOSPHATASE INCREASED [None]
  - BLOOD BILIRUBIN INCREASED [None]
  - BLOOD CALCIUM DECREASED [None]
  - BLOOD CHLORIDE INCREASED [None]
  - BLOOD CREATINE PHOSPHOKINASE INCREASED [None]
  - BLOOD CREATINE PHOSPHOKINASE MB INCREASED [None]
  - BLOOD CREATININE INCREASED [None]
  - BLOOD FIBRINOGEN DECREASED [None]
  - BLOOD GLUCOSE INCREASED [None]
  - BLOOD PHOSPHORUS DECREASED [None]
  - BLOOD PHOSPHORUS INCREASED [None]
  - BLOOD POTASSIUM INCREASED [None]
  - BLOOD SODIUM DECREASED [None]
  - BLOOD SODIUM INCREASED [None]
  - BLOOD UREA INCREASED [None]
  - HAEMATOCRIT DECREASED [None]
  - HAEMOGLOBIN DECREASED [None]
  - INTERNATIONAL NORMALISED RATIO INCREASED [None]
  - LYMPHOCYTE COUNT DECREASED [None]
  - MITRAL VALVE REPAIR [None]
  - NEUTROPHIL COUNT INCREASED [None]
  - PCO2 DECREASED [None]
  - PLATELET COUNT DECREASED [None]
  - PROTEIN TOTAL DECREASED [None]
  - PROTHROMBIN TIME PROLONGED [None]
  - RED BLOOD CELL COUNT DECREASED [None]
  - TRICUSPID VALVE REPAIR [None]
  - TROPONIN INCREASED [None]
  - WHITE BLOOD CELL COUNT INCREASED [None]
